FAERS Safety Report 9433333 (Version 4)
Quarter: 2013Q4

REPORT INFORMATION
  Report Type: Spontaneous
  Country: US (occurrence: US)
  Receive Date: 20130731
  Receipt Date: 20131115
  Transmission Date: 20140711
  Serious: No
  Sender: FDA-Public Use
  Company Number: US-PFIZER INC-2013218653

PATIENT
  Age: 36 Year
  Sex: Female
  Weight: 97.51 kg

DRUGS (1)
  1. ELELYSO [Suspect]
     Indication: GAUCHER^S DISEASE
     Dosage: 6000 UNITS EVERY 2 WEEKS
     Route: 042
     Dates: start: 20130107

REACTIONS (1)
  - Weight increased [Unknown]
